FAERS Safety Report 10133535 (Version 1)
Quarter: 2014Q2

REPORT INFORMATION
  Report Type: Spontaneous
  Country: US (occurrence: US)
  Receive Date: 20140428
  Receipt Date: 20140428
  Transmission Date: 20141212
  Serious: No
  Sender: FDA-Public Use
  Company Number: US-ASTRAZENECA-2014SE26191

PATIENT
  Age: 92 Year
  Sex: Female
  Weight: 58.5 kg

DRUGS (2)
  1. RHINOCORT AQUA [Suspect]
     Indication: RHINORRHOEA
     Dosage: 2 SPRAYS EACH NOSTRIL DAILY
     Route: 045
     Dates: start: 20140401
  2. NASALCORT [Concomitant]
     Indication: RHINORRHOEA
     Dosage: UNKNOWN UNK

REACTIONS (5)
  - Feeling abnormal [Recovered/Resolved]
  - Dizziness [Recovered/Resolved]
  - Dizziness [Recovered/Resolved]
  - Off label use [Unknown]
  - Intentional product misuse [Unknown]
